FAERS Safety Report 22079678 (Version 2)
Quarter: 2023Q2

REPORT INFORMATION
  Report Type: Spontaneous
  Country: TR (occurrence: TR)
  Receive Date: 20230309
  Receipt Date: 20230427
  Transmission Date: 20230722
  Serious: Yes (Death, Hospitalization, Other)
  Sender: FDA-Public Use
  Company Number: TR-GILEAD-2023-0618831

PATIENT
  Age: 45 Year
  Sex: Male

DRUGS (2)
  1. AMPHOTERICIN B [Suspect]
     Active Substance: AMPHOTERICIN B
     Indication: HIV infection
     Route: 065
  2. AMPHOTERICIN B [Suspect]
     Active Substance: AMPHOTERICIN B
     Indication: Endocarditis

REACTIONS (4)
  - Death [Fatal]
  - Vitreous haemorrhage [Unknown]
  - Generalised tonic-clonic seizure [Not Recovered/Not Resolved]
  - Hypoxia [Unknown]
